FAERS Safety Report 4881048-X (Version None)
Quarter: 2005Q4

REPORT INFORMATION
  Report Type: 
  Country: None (occurrence: None)
  Receive Date: 20051223
  Receipt Date: 20050919
  Transmission Date: 20060501
  Serious: No
  Sender: FDA-Public Use
  Company Number: 05P-163-0311781-00

PATIENT
  Age: 60 Year
  Sex: Male
  Weight: 65.7716 kg

DRUGS (2)
  1. HUMIRA [Suspect]
     Indication: RHEUMATOID ARTHRITIS
     Dosage: 40 MG, 1 IN 2 WK, SUBCUTANEOUS
     Route: 058
     Dates: start: 20050501
  2. PREDNISONE [Concomitant]

REACTIONS (7)
  - ABDOMINAL PAIN [None]
  - FULL BLOOD COUNT ABNORMAL [None]
  - GASTRIC PH DECREASED [None]
  - GASTRIC ULCER [None]
  - GASTRIC ULCER HAEMORRHAGE [None]
  - HELICOBACTER INFECTION [None]
  - NAUSEA [None]
